FAERS Safety Report 8697901 (Version 2)
Quarter: 2013Q4

REPORT INFORMATION
  Report Type: Spontaneous
  Country: US (occurrence: US)
  Receive Date: 20120801
  Receipt Date: 20131031
  Transmission Date: 20140711
  Serious: Yes (Other)
  Sender: FDA-Public Use
  Company Number: US-009507513-1207USA012283

PATIENT
  Sex: Female

DRUGS (3)
  1. ASMANEX TWISTHALER [Suspect]
     Dosage: 200 MICROGRAM, BID
     Route: 050
  2. CEFTIN [Concomitant]
     Dosage: UNK
  3. SYNTHROID [Concomitant]
     Dosage: UNK

REACTIONS (5)
  - Respiratory tract inflammation [Unknown]
  - Hypoaesthesia oral [Unknown]
  - Nasal discomfort [Unknown]
  - Dyspnoea [Unknown]
  - Chest pain [Unknown]
